FAERS Safety Report 21898585 (Version 3)
Quarter: 2023Q1

REPORT INFORMATION
  Report Type: Spontaneous
  Country: US (occurrence: US)
  Receive Date: 20230123
  Receipt Date: 20230303
  Transmission Date: 20230418
  Serious: No
  Sender: FDA-Public Use
  Company Number: US-PFIZER INC-PV202300012697

PATIENT
  Age: 59 Year
  Sex: Female
  Weight: 58.957 kg

DRUGS (1)
  1. CIBINQO [Suspect]
     Active Substance: ABROCITINIB
     Indication: Dermatitis atopic
     Dosage: 100 MG, 1X/DAY
     Route: 048
     Dates: start: 20221207, end: 20230204

REACTIONS (3)
  - Drug ineffective [Unknown]
  - Rash papular [Unknown]
  - Acne [Recovering/Resolving]

NARRATIVE: CASE EVENT DATE: 20230118
